FAERS Safety Report 25662134 (Version 2)
Quarter: 2025Q3

REPORT INFORMATION
  Report Type: Spontaneous
  Country: US (occurrence: US)
  Receive Date: 20250810
  Receipt Date: 20250904
  Transmission Date: 20251020
  Serious: No
  Sender: GLAXOSMITHKLINE
  Company Number: US-GSK-US2025088617

PATIENT
  Sex: Male

DRUGS (9)
  1. TRELEGY ELLIPTA [Suspect]
     Active Substance: FLUTICASONE FUROATE\UMECLIDINIUM BROMIDE\VILANTEROL TRIFENATATE
     Indication: Chronic obstructive pulmonary disease
     Dosage: 1 PUFF(S), QD, 200/62.5/25 MCG
     Dates: start: 20250627
  2. ALBUTEROL [Concomitant]
     Active Substance: ALBUTEROL
     Indication: Product used for unknown indication
  3. SYNTHROID [Concomitant]
     Active Substance: LEVOTHYROXINE SODIUM
     Indication: Thyroid disorder
  4. CIALIS [Concomitant]
     Active Substance: TADALAFIL
     Indication: Product used for unknown indication
  5. ASPIRIN [Concomitant]
     Active Substance: ASPIRIN
     Indication: Product used for unknown indication
  6. TRAMADOL [Concomitant]
     Active Substance: TRAMADOL
     Indication: Arthralgia
  7. TRAMADOL [Concomitant]
     Active Substance: TRAMADOL
     Indication: Arthritis
  8. OXYCODONE [Concomitant]
     Active Substance: OXYCODONE
     Indication: Arthralgia
  9. OXYCODONE [Concomitant]
     Active Substance: OXYCODONE
     Indication: Arthritis

REACTIONS (3)
  - Aphonia [Not Recovered/Not Resolved]
  - Off label use [Unknown]
  - Product complaint [Unknown]
